FAERS Safety Report 16184810 (Version 2)
Quarter: 2019Q2

REPORT INFORMATION
  Report Type: Spontaneous
  Country: US (occurrence: US)
  Receive Date: 20190411
  Receipt Date: 20190426
  Transmission Date: 20190711
  Serious: No
  Sender: FDA-Public Use
  Company Number: US-009507513-1904USA004764

PATIENT
  Sex: Female

DRUGS (1)
  1. NEXPLANON [Suspect]
     Active Substance: ETONOGESTREL
     Dosage: 1IMPLANT
     Route: 059
     Dates: start: 20190123, end: 20190405

REACTIONS (4)
  - Complication of device removal [Recovered/Resolved]
  - Product quality issue [Recovered/Resolved]
  - Menstruation irregular [Unknown]
  - Device breakage [Recovered/Resolved]

NARRATIVE: CASE EVENT DATE: 20190305
